FAERS Safety Report 4418488-9 (Version None)
Quarter: 2004Q3

REPORT INFORMATION
  Report Type: 
  Country: None (occurrence: None)
  Receive Date: 20040809
  Receipt Date: 20040511
  Transmission Date: 20050211
  Serious: No
  Sender: FDA-Public Use
  Company Number: US-GLAXOSMITHKLINE-A0510426A

PATIENT
  Age: 48 Year
  Sex: Female

DRUGS (4)
  1. PAXIL CR [Suspect]
     Indication: DEPRESSION
     Dosage: 12.5MG PER DAY
     Route: 048
     Dates: start: 20010101, end: 20040507
  2. WELLBUTRIN [Suspect]
     Indication: DEPRESSION
     Dosage: 150MG PER DAY
     Route: 048
     Dates: start: 20040509
  3. STRATTERA [Concomitant]
  4. ESTRATEST [Concomitant]

REACTIONS (3)
  - IRRITABILITY [None]
  - TREMOR [None]
  - WEIGHT INCREASED [None]
